FAERS Safety Report 6664300-7 (Version None)
Quarter: 2010Q2

REPORT INFORMATION
  Report Type: 
  Country: None (occurrence: None)
  Receive Date: 20100401
  Receipt Date: 20100323
  Transmission Date: 20101027
  Serious: Yes (Hospitalization)
  Sender: FDA-Public Use
  Company Number: FR-ELI_LILLY_AND_COMPANY-FR201001005277

PATIENT
  Age: 75 Year
  Sex: Female
  Weight: 80 kg

DRUGS (1)
  1. CYMBALTA [Suspect]
     Indication: DEPRESSION
     Dosage: 60 MG, DAILY (1/D)
     Route: 048
     Dates: start: 20100101, end: 20100101

REACTIONS (3)
  - CONFUSIONAL STATE [None]
  - DELUSION [None]
  - EROTOMANIC DELUSION [None]
